FAERS Safety Report 14753122 (Version 1)
Quarter: 2018Q2

REPORT INFORMATION
  Report Type: Other
  Country: US (occurrence: US)
  Receive Date: 20180412
  Receipt Date: 20180412
  Transmission Date: 20180711
  Serious: Yes (Life-Threatening)
  Sender: FDA-Public Use
  Company Number: US-ACIC FINE CHEMICALS INC-2045679

PATIENT
  Age: 31 Year
  Sex: Female

DRUGS (2)
  1. TRANEXAMIC ACID. [Suspect]
     Active Substance: TRANEXAMIC ACID
     Indication: HAEMORRHAGE
     Route: 042
  2. CYSTALLOID [Concomitant]

REACTIONS (4)
  - Mass [Recovered/Resolved]
  - Dyspnoea [Recovered/Resolved]
  - Embolism [Recovered/Resolved]
  - Pulmonary embolism [Recovered/Resolved]
